FAERS Safety Report 25769528 (Version 1)
Quarter: 2025Q3

REPORT INFORMATION
  Report Type: Spontaneous
  Country: EU (occurrence: EU)
  Receive Date: 20250906
  Receipt Date: 20250906
  Transmission Date: 20251021
  Serious: Yes (Hospitalization)
  Sender: ACCORD
  Company Number: EU-MLMSERVICE-20250818-PI616681-00108-1

PATIENT
  Age: 40 Year
  Sex: Male

DRUGS (1)
  1. CLOZAPINE [Suspect]
     Active Substance: CLOZAPINE
     Indication: Schizophrenia
     Dates: start: 2015

REACTIONS (1)
  - Dilated cardiomyopathy [Recovering/Resolving]
